FAERS Safety Report 8177176-6 (Version None)
Quarter: 2012Q1

REPORT INFORMATION
  Report Type: 
  Country: None (occurrence: None)
  Receive Date: 20120301
  Receipt Date: 20120220
  Transmission Date: 20120608
  Serious: Yes (Hospitalization)
  Sender: FDA-Public Use
  Company Number: US-BAYER-2011-030633

PATIENT
  Age: 18 Year
  Sex: Female
  Weight: 91 kg

DRUGS (7)
  1. YAZ [Suspect]
  2. DROSPIRENONE AND ETHINYL ESTRADIOL [Suspect]
     Indication: CONTRACEPTION
     Dosage: UNK
     Dates: start: 20090506, end: 20091214
  3. ZOLOFT [Concomitant]
     Dosage: 100MG
     Dates: start: 20061226, end: 20111125
  4. SEROQUEL [Concomitant]
     Dosage: 25MG
     Dates: start: 20080627, end: 20120109
  5. YASMIN [Suspect]
     Indication: CONTRACEPTION
     Dosage: UNK
     Dates: start: 20080625, end: 20090506
  6. YASMIN [Suspect]
     Indication: PREMENSTRUAL SYNDROME
  7. DROSPIRENONE AND ETHINYL ESTRADIOL [Suspect]
     Indication: PREMENSTRUAL SYNDROME

REACTIONS (10)
  - CHOLELITHIASIS [None]
  - ABDOMINAL PAIN UPPER [None]
  - EMOTIONAL DISTRESS [None]
  - ANXIETY [None]
  - PAIN [None]
  - ANHEDONIA [None]
  - INJURY [None]
  - FEAR [None]
  - PSYCHOLOGICAL TRAUMA [None]
  - CHOLECYSTITIS [None]
